FAERS Safety Report 8767148 (Version 3)
Quarter: 2012Q4

REPORT INFORMATION
  Report Type: 
  Country: US (occurrence: US)
  Receive Date: 20120904
  Receipt Date: 20121212
  Transmission Date: 20130627
  Serious: Yes (Hospitalization)
  Sender: FDA-Public Use
  Company Number: US-ALEXION-A201201566

PATIENT
  Age: 19 None
  Sex: Female
  Weight: 80 kg

DRUGS (2)
  1. SOLIRIS 300MG [Suspect]
     Indication: HAEMOLYTIC URAEMIC SYNDROME
     Dosage: 900 mg, single
     Route: 042
     Dates: end: 201207
  2. SOLIRIS 300MG [Suspect]
     Dosage: 1200 mg, UNK
     Route: 042
     Dates: start: 20120616

REACTIONS (5)
  - Convulsion [Unknown]
  - Vasculitis cerebral [Not Recovered/Not Resolved]
  - Blood lactate dehydrogenase increased [Unknown]
  - Transfusion [Unknown]
  - Malignant hypertension [Unknown]
